FAERS Safety Report 21056665 (Version 1)
Quarter: 2022Q3

REPORT INFORMATION
  Report Type: Spontaneous
  Country: US (occurrence: US)
  Receive Date: 20220708
  Receipt Date: 20220708
  Transmission Date: 20221026
  Serious: No
  Sender: FDA-Public Use
  Company Number: US-ALLERGAN-2216507US

PATIENT
  Sex: Female

DRUGS (1)
  1. QULIPTA [Suspect]
     Active Substance: ATOGEPANT
     Indication: Rheumatoid arthritis
     Dosage: UNK

REACTIONS (5)
  - Sleep disorder [Recovering/Resolving]
  - Pain in extremity [Recovering/Resolving]
  - Peripheral swelling [Recovering/Resolving]
  - Weight increased [Not Recovered/Not Resolved]
  - Off label use [Unknown]
